FAERS Safety Report 23790076 (Version 1)
Quarter: 2024Q2

REPORT INFORMATION
  Report Type: Spontaneous
  Country: US (occurrence: US)
  Receive Date: 20240426
  Receipt Date: 20240426
  Transmission Date: 20240716
  Serious: Yes (Other)
  Sender: FDA-Public Use
  Company Number: US-002147023-NVSC2024US085709

PATIENT
  Sex: Female

DRUGS (5)
  1. GLEEVEC [Suspect]
     Active Substance: IMATINIB MESYLATE
     Indication: Product used for unknown indication
     Dosage: 600 MG, QD (1 400MG TABLET AND 2 100MG TABLETS)
     Route: 048
     Dates: start: 20010307
  2. BIOTENE NOS [Concomitant]
     Active Substance: CETYLPYRIDINIUM CHLORIDE OR SODIUM FLUORIDE OR SODIUM MONOFLUOROPHOSPHATE OR GLUCOSE OXIDASE\LACTOFE
     Indication: Product used for unknown indication
     Dosage: UNK
     Route: 065
  3. NM-6603 [Concomitant]
     Active Substance: NM-6603
     Indication: Product used for unknown indication
     Dosage: UNK
     Route: 065
  4. CARAFATE [Concomitant]
     Active Substance: SUCRALFATE
     Indication: Product used for unknown indication
     Dosage: UNK
     Route: 065
  5. SYNTHROID [Concomitant]
     Active Substance: LEVOTHYROXINE SODIUM
     Indication: Product used for unknown indication
     Dosage: UNK
     Route: 065

REACTIONS (9)
  - Gastrointestinal haemorrhage [Unknown]
  - Disease progression [Unknown]
  - Dyspepsia [Unknown]
  - Vomiting [Unknown]
  - Abdominal discomfort [Unknown]
  - Anaemia [Unknown]
  - Feeding disorder [Unknown]
  - Sleep disorder [Unknown]
  - Electrolyte imbalance [Unknown]
